FAERS Safety Report 21251556 (Version 1)
Quarter: 2022Q3

REPORT INFORMATION
  Report Type: Spontaneous
  Country: US (occurrence: US)
  Receive Date: 20220825
  Receipt Date: 20220825
  Transmission Date: 20221026
  Serious: No
  Sender: FDA-Public Use
  Company Number: US-UNITED THERAPEUTICS-UNT-2022-006579

PATIENT
  Sex: Male

DRUGS (5)
  1. REMODULIN [Suspect]
     Active Substance: TREPROSTINIL
     Indication: Pulmonary arterial hypertension
     Dosage: UNK, CONTINUING
     Route: 058
     Dates: start: 20220301
  2. REMODULIN [Suspect]
     Active Substance: TREPROSTINIL
     Dosage: 0.0107 ?G/KG, CONTINUING
     Route: 058
     Dates: start: 202203
  3. REMODULIN [Suspect]
     Active Substance: TREPROSTINIL
     Dosage: 0.0228 ?G/KG, CONTINUING
     Route: 058
     Dates: start: 202203
  4. REMODULIN [Suspect]
     Active Substance: TREPROSTINIL
     Dosage: 0.0392 ?G/KG, CONTINUING
     Route: 058
     Dates: start: 2022
  5. LECITHIN\POLOXAMER 407 [Suspect]
     Active Substance: LECITHIN\POLOXAMER 407
     Indication: Infusion site pain
     Dosage: UNK
     Route: 065
     Dates: start: 2022, end: 2022

REACTIONS (8)
  - Pain [Unknown]
  - Nausea [Unknown]
  - Headache [Not Recovered/Not Resolved]
  - Diarrhoea [Not Recovered/Not Resolved]
  - Pain in extremity [Not Recovered/Not Resolved]
  - Pain in jaw [Not Recovered/Not Resolved]
  - Infusion site pain [Unknown]
  - Therapy non-responder [Unknown]

NARRATIVE: CASE EVENT DATE: 20220101
